FAERS Safety Report 9597126 (Version 1)
Quarter: 2013Q4

REPORT INFORMATION
  Report Type: Report from Study
  Country: US (occurrence: US)
  Receive Date: 20131004
  Receipt Date: 20131004
  Transmission Date: 20140711
  Serious: Yes (Other)
  Sender: FDA-Public Use
  Company Number: US-ABBVIE-13P-163-1152478-00

PATIENT
  Sex: Female

DRUGS (3)
  1. HUMIRA [Suspect]
     Indication: PSORIASIS
     Dates: start: 201306
  2. HUMIRA [Suspect]
     Indication: PSORIATIC ARTHROPATHY
  3. DETROL LA [Concomitant]
     Indication: HYPERTONIC BLADDER

REACTIONS (5)
  - Deafness [Recovered/Resolved]
  - Sinus headache [Recovered/Resolved]
  - Psoriasis [Not Recovered/Not Resolved]
  - Arthralgia [Not Recovered/Not Resolved]
  - Drug ineffective [Not Recovered/Not Resolved]
